FAERS Safety Report 8355095 (Version 4)
Quarter: 2013Q3

REPORT INFORMATION
  Report Type: Report from Study
  Country: US (occurrence: US)
  Receive Date: 20120126
  Receipt Date: 20130902
  Transmission Date: 20140515
  Serious: Yes (Hospitalization, Other)
  Sender: FDA-Public Use
  Company Number: US-BIOGENIDEC-2012BI002227

PATIENT
  Age: 35 Year
  Sex: Female
  Weight: 60 kg

DRUGS (11)
  1. TYSABRI [Suspect]
     Indication: MULTIPLE SCLEROSIS
     Route: 042
     Dates: start: 20080319
  2. CLONAZEPAM [Concomitant]
     Indication: ANXIETY
     Route: 048
     Dates: start: 20100902
  3. CLONAZEPAM [Concomitant]
     Indication: TREMOR
     Route: 048
     Dates: start: 20100902
  4. DUAC CS [Concomitant]
     Indication: ACNE
     Route: 061
     Dates: start: 20110314
  5. FLUOXETINE [Concomitant]
     Indication: DEPRESSION
     Route: 048
     Dates: start: 20101213
  6. GABAPENTIN [Concomitant]
     Indication: MULTIPLE SCLEROSIS
     Route: 048
     Dates: start: 20081216
  7. LOVASTATIN [Concomitant]
     Indication: BLOOD CHOLESTEROL
     Route: 048
     Dates: start: 20071012
  8. TRAZODONE [Concomitant]
     Indication: DEPRESSION
     Route: 048
     Dates: start: 20090831
  9. TRETINOIN [Concomitant]
     Indication: ACNE
     Route: 061
     Dates: start: 20110314
  10. METHYLPREDNISOLONE [Concomitant]
     Route: 042
     Dates: start: 20070801
  11. CYTOXAN [Concomitant]
     Route: 042
     Dates: start: 20071109

REACTIONS (1)
  - Papillary thyroid cancer [Recovered/Resolved]
